FAERS Safety Report 19149101 (Version 2)
Quarter: 2021Q2

REPORT INFORMATION
  Report Type: Spontaneous
  Country: TR (occurrence: TR)
  Receive Date: 20210417
  Receipt Date: 20210428
  Transmission Date: 20210717
  Serious: Yes (Other)
  Sender: FDA-Public Use
  Company Number: TR-ROCHE-2812725

PATIENT
  Age: 69 Year
  Sex: Female

DRUGS (4)
  1. ZENTIUS D [Concomitant]
     Indication: HYPERTHYROIDISM
     Route: 048
  2. BONVIVA [Suspect]
     Active Substance: IBANDRONATE SODIUM
     Indication: OSTEOPOROSIS POSTMENOPAUSAL
     Route: 048
  3. LANSOR [Concomitant]
     Active Substance: LANSOPRAZOLE
     Indication: PRODUCT USED FOR UNKNOWN INDICATION
     Route: 048
  4. EUTHYROX [Concomitant]
     Active Substance: LEVOTHYROXINE SODIUM
     Indication: HYPOTHYROIDISM
     Route: 048

REACTIONS (3)
  - Anal haemorrhage [Recovered/Resolved]
  - Abdominal pain upper [Recovered/Resolved]
  - Anal pruritus [Recovered/Resolved]

NARRATIVE: CASE EVENT DATE: 20210219
